FAERS Safety Report 22228819 (Version 1)
Quarter: 2023Q2

REPORT INFORMATION
  Report Type: Spontaneous
  Country: CN (occurrence: CN)
  Receive Date: 20230419
  Receipt Date: 20230419
  Transmission Date: 20230722
  Serious: Yes (Hospitalization)
  Sender: FDA-Public Use
  Company Number: None

PATIENT
  Age: 59 Year
  Sex: Female
  Weight: 55 kg

DRUGS (3)
  1. CYCLOPHOSPHAMIDE [Suspect]
     Active Substance: CYCLOPHOSPHAMIDE
     Indication: Breast cancer female
     Dosage: 0.77G/TIME, QD (COMBINED WITH PIRARUBICIN HYDROCHLORIDE 77 MG AND DOCETAXEL 116 MG)
     Route: 041
     Dates: start: 20230331, end: 20230331
  2. DOCETAXEL [Suspect]
     Active Substance: DOCETAXEL
     Indication: Breast cancer female
     Dosage: 116 MG, QD (COMBINED WITH PIRARUBICIN HYDROCHLORIDE 77 MG AND CYCLOPHOSPHAMIDE 0.77 G)
     Route: 041
     Dates: start: 20230331, end: 20230331
  3. PIRARUBICIN HYDROCHLORIDE [Suspect]
     Active Substance: PIRARUBICIN HYDROCHLORIDE
     Indication: Breast cancer female
     Dosage: 77 MG/TIME, QD (COMBINED WITH DOCETAXEL 116 MG AND CYCLOPHOSPHAMIDE 0.77 G)
     Route: 041
     Dates: start: 20230331, end: 20230331

REACTIONS (3)
  - Gastrointestinal disorder [Recovering/Resolving]
  - Nausea [Recovering/Resolving]
  - Vomiting [Recovering/Resolving]

NARRATIVE: CASE EVENT DATE: 20230401
